FAERS Safety Report 10215959 (Version 1)
Quarter: 2014Q2

REPORT INFORMATION
  Report Type: Spontaneous
  Country: FR (occurrence: FR)
  Receive Date: 20140604
  Receipt Date: 20140604
  Transmission Date: 20141212
  Serious: Yes (Hospitalization)
  Sender: FDA-Public Use
  Company Number: FR-ELI_LILLY_AND_COMPANY-FR201405008559

PATIENT
  Age: 47 Year
  Sex: Female

DRUGS (6)
  1. ALIMTA [Suspect]
     Indication: LUNG CANCER METASTATIC
     Dosage: 715 MG, UNKNOWN
     Route: 042
     Dates: start: 20140122
  2. ALIMTA [Suspect]
     Dosage: 705 MG, UNK
     Dates: start: 20140409, end: 20140409
  3. CARBOPLATINE [Suspect]
     Indication: LUNG CANCER METASTATIC
     Dosage: 107 MG, UNKNOWN
     Route: 042
     Dates: start: 20140217, end: 20140409
  4. CARBOPLATINE [Suspect]
     Dosage: 383 MG, UNK
  5. CARBOPLATINE [Suspect]
     Dosage: 380 MG, UNK
     Dates: start: 20140312
  6. CARBOPLATINE [Suspect]
     Dosage: 374 MG, UNK
     Dates: start: 20140409

REACTIONS (6)
  - Anaemia [Not Recovered/Not Resolved]
  - Neutropenia [Not Recovered/Not Resolved]
  - Thrombocytopenia [Not Recovered/Not Resolved]
  - Renal failure acute [Not Recovered/Not Resolved]
  - Hypokalaemia [Unknown]
  - Pyrexia [Unknown]
